FAERS Safety Report 10592534 (Version 1)
Quarter: 2014Q4

REPORT INFORMATION
  Report Type: Spontaneous
  Country: US (occurrence: US)
  Receive Date: 20141119
  Receipt Date: 20141119
  Transmission Date: 20150529
  Serious: No
  Sender: FDA-Public Use
  Company Number: US-PFIZER INC-2014314027

PATIENT
  Sex: Male

DRUGS (2)
  1. LIPITOR [Suspect]
     Active Substance: ATORVASTATIN CALCIUM
     Dosage: 20 MG, DAILY
  2. DILTIAZ ER (XR) [Suspect]
     Active Substance: DILTIAZEM HYDROCHLORIDE
     Dosage: 240/24, DAILY

REACTIONS (1)
  - Musculoskeletal chest pain [Unknown]
